FAERS Safety Report 10346367 (Version 1)
Quarter: 2014Q3

REPORT INFORMATION
  Report Type: Spontaneous
  Country: ZA (occurrence: ZA)
  Receive Date: 20140728
  Receipt Date: 20140728
  Transmission Date: 20150326
  Serious: Yes (Other)
  Sender: FDA-Public Use
  Company Number: ZA-ABBVIE-14P-143-1265518-00

PATIENT
  Age: 62 Year
  Sex: Female

DRUGS (5)
  1. ETHAMBUTOL W/ISONIAZID/PYRAZINAMIDE [Interacting]
     Active Substance: ETHAMBUTOL\ISONIAZID\PYRAZINAMIDE
     Indication: TUBERCULOSIS
  2. ABACAVIR [Interacting]
     Active Substance: ABACAVIR
     Indication: HIV INFECTION
  3. LOPINAVIR + RITONAVIR [Interacting]
     Active Substance: LOPINAVIR\RITONAVIR
     Indication: HIV INFECTION
  4. 3TC [Interacting]
     Active Substance: LAMIVUDINE
     Indication: HIV INFECTION
  5. EPILIZINE [Suspect]
     Active Substance: VALPROATE SODIUM
     Indication: PRODUCT USED FOR UNKNOWN INDICATION
     Route: 042
     Dates: start: 2014

REACTIONS (2)
  - Drug interaction [Not Recovered/Not Resolved]
  - Drug level decreased [Not Recovered/Not Resolved]
